FAERS Safety Report 17677382 (Version 4)
Quarter: 2020Q2

REPORT INFORMATION
  Report Type: Report from Study
  Country: SA (occurrence: SA)
  Receive Date: 20200416
  Receipt Date: 20200501
  Transmission Date: 20200714
  Serious: Yes (Hospitalization)
  Sender: FDA-Public Use
  Company Number: SA-B.I. PHARMACEUTICALS,INC./RIDGEFIELD-2020-BI-019895

PATIENT
  Age: 48 Year
  Sex: Female
  Weight: 72 kg

DRUGS (2)
  1. METFORMIN [Concomitant]
     Active Substance: METFORMIN HYDROCHLORIDE
     Indication: DIABETES MELLITUS
     Route: 065
     Dates: start: 20190101, end: 20200314
  2. SYNJARDY [Suspect]
     Active Substance: EMPAGLIFLOZIN\METFORMIN HYDROCHLORIDE
     Indication: TYPE 2 DIABETES MELLITUS
     Dosage: DAILY DOSE- 5/1000
     Route: 048
     Dates: start: 20190314, end: 20200212

REACTIONS (3)
  - Dehydration [Recovered/Resolved]
  - Hyperglycaemia [Recovered/Resolved]
  - Diabetic ketoacidosis [Recovered/Resolved]

NARRATIVE: CASE EVENT DATE: 20200312
